APPROVED DRUG PRODUCT: BESIVANCE
Active Ingredient: BESIFLOXACIN HYDROCHLORIDE
Strength: EQ 0.6% BASE
Dosage Form/Route: SUSPENSION/DROPS;OPHTHALMIC
Application: N022308 | Product #001
Applicant: BAUSCH AND LOMB INC
Approved: May 28, 2009 | RLD: Yes | RS: Yes | Type: RX

PATENTS:
Patent 8937062 | Expires: Nov 13, 2029
Patent 8415342 | Expires: Nov 7, 2030
Patent 8604020 | Expires: Mar 12, 2030
Patent 8481526 | Expires: Jan 9, 2031